FAERS Safety Report 6495446-4 (Version None)
Quarter: 2009Q4

REPORT INFORMATION
  Report Type: 
  Country: None (occurrence: None)
  Receive Date: 20091214
  Receipt Date: 20090624
  Transmission Date: 20100525
  Serious: No
  Sender: FDA-Public Use
  Company Number: US-BRISTOL-MYERS SQUIBB COMPANY-14677728

PATIENT
  Age: 31 Year

DRUGS (1)
  1. ABILIFY [Suspect]
     Dosage: INITIALLY 20MG GIVEN.

REACTIONS (2)
  - BRUXISM [None]
  - MUSCLE TIGHTNESS [None]
